FAERS Safety Report 20307057 (Version 1)
Quarter: 2022Q1

REPORT INFORMATION
  Report Type: Spontaneous
  Country: CN (occurrence: CN)
  Receive Date: 20220107
  Receipt Date: 20220107
  Transmission Date: 20220423
  Serious: Yes (Congenital Anomaly, Other)
  Sender: FDA-Public Use
  Company Number: CN-JNJFOC-20220100705

PATIENT
  Age: 64 Year
  Sex: Female
  Weight: 73 kg

DRUGS (1)
  1. DARZALEX [Suspect]
     Active Substance: DARATUMUMAB
     Indication: Plasma cell myeloma
     Route: 041
     Dates: start: 20211218

REACTIONS (5)
  - Asthma [Recovering/Resolving]
  - Atrial fibrillation [Recovering/Resolving]
  - Hypersensitivity [Recovering/Resolving]
  - Infusion related reaction [Recovering/Resolving]
  - Ventricular extrasystoles [Recovering/Resolving]

NARRATIVE: CASE EVENT DATE: 20211218
